FAERS Safety Report 8209719-8 (Version None)
Quarter: 2012Q1

REPORT INFORMATION
  Report Type: 
  Country: None (occurrence: None)
  Receive Date: 20120314
  Receipt Date: 20120305
  Transmission Date: 20120608
  Serious: Yes (Other)
  Sender: FDA-Public Use
  Company Number: JP-ASTRAZENECA-2012SE16278

PATIENT
  Age: 80 Year
  Sex: Female

DRUGS (8)
  1. ALDACTONE [Concomitant]
     Route: 065
  2. LOXONIN [Concomitant]
     Route: 065
  3. METHYCOBAL [Concomitant]
     Route: 065
  4. CODEINE PHOSPHATE [Concomitant]
     Route: 065
  5. FASLODEX [Suspect]
     Indication: BREAST CANCER
     Route: 030
     Dates: start: 20120101, end: 20120305
  6. LANSOPRAZOLE [Concomitant]
     Route: 065
  7. LASIX [Concomitant]
     Route: 065
  8. PACIF [Concomitant]
     Route: 065

REACTIONS (1)
  - PLATELET COUNT DECREASED [None]
